FAERS Safety Report 11181114 (Version 2)
Quarter: 2015Q2

REPORT INFORMATION
  Report Type: Spontaneous
  Country: US (occurrence: US)
  Receive Date: 20150611
  Receipt Date: 20150616
  Transmission Date: 20150821
  Serious: No
  Sender: FDA-Public Use
  Company Number: US-PFIZER INC-2015192293

PATIENT
  Age: 63 Year
  Sex: Male
  Weight: 77.98 kg

DRUGS (3)
  1. COMBIGAN [Suspect]
     Active Substance: BRIMONIDINE TARTRATE\TIMOLOL MALEATE
     Indication: VISUAL IMPAIRMENT
     Dosage: UNK
  2. XALATAN [Suspect]
     Active Substance: LATANOPROST
     Indication: VISUAL IMPAIRMENT
  3. XALATAN [Suspect]
     Active Substance: LATANOPROST
     Indication: GLAUCOMA
     Dosage: 2.5 MG, ONCE A DAY, DROP

REACTIONS (3)
  - Nasal disorder [Unknown]
  - Rash papular [Unknown]
  - Rash erythematous [Unknown]

NARRATIVE: CASE EVENT DATE: 2014
